FAERS Safety Report 6886336-3 (Version None)
Quarter: 2010Q3

REPORT INFORMATION
  Report Type: 
  Country: None (occurrence: None)
  Receive Date: 20100729
  Receipt Date: 20080613
  Transmission Date: 20110219
  Serious: No
  Sender: FDA-Public Use
  Company Number: US-PFIZER INC-2008017480

PATIENT
  Sex: Female
  Weight: 81.8 kg

DRUGS (7)
  1. CELEBREX [Suspect]
     Indication: INTERVERTEBRAL DISC PROTRUSION
     Dates: start: 20070101, end: 20071201
  2. CELEBREX [Suspect]
     Indication: ARTHROPATHY
  3. CELEBREX [Suspect]
     Indication: FIBROMYALGIA
  4. BEXTRA [Suspect]
     Indication: INTERVERTEBRAL DISC PROTRUSION
     Dates: start: 20000101
  5. BEXTRA [Suspect]
     Indication: ARTHROPATHY
  6. BEXTRA [Suspect]
     Indication: FIBROMYALGIA
  7. METFORMIN HCL [Concomitant]
     Indication: DIABETES MELLITUS

REACTIONS (4)
  - CONFUSIONAL STATE [None]
  - CORRECTIVE LENS USER [None]
  - FATIGUE [None]
  - SLUGGISHNESS [None]
